FAERS Safety Report 19830735 (Version 1)
Quarter: 2021Q3

REPORT INFORMATION
  Report Type: Report from Study
  Country: US (occurrence: US)
  Receive Date: 20210915
  Receipt Date: 20210915
  Transmission Date: 20211014
  Serious: Yes (Other)
  Sender: FDA-Public Use
  Company Number: US-BIOVITRUM-2021US8313

PATIENT
  Sex: Female

DRUGS (1)
  1. KINERET [Suspect]
     Active Substance: ANAKINRA
     Indication: PRODUCT USED FOR UNKNOWN INDICATION
     Dosage: 100 (UNIT NOT REPORTED) DAILY
     Route: 058
     Dates: start: 20190116

REACTIONS (4)
  - Rheumatoid arthritis [Unknown]
  - Hypertension [Recovering/Resolving]
  - Illness [Recovering/Resolving]
  - Product dose omission issue [Unknown]
